FAERS Safety Report 9182112 (Version 1)
Quarter: 2013Q1

REPORT INFORMATION
  Report Type: Spontaneous
  Country: US (occurrence: None)
  Receive Date: 20130321
  Receipt Date: 20130321
  Transmission Date: 20140127
  Serious: Yes (Disabling, Other)
  Sender: FDA-Public Use
  Company Number: None

PATIENT
  Age: 59 Year
  Sex: Female
  Weight: 56.25 kg

DRUGS (1)
  1. LEXAPRO [Suspect]
     Indication: DEPRESSION
     Route: 048
     Dates: start: 20120512, end: 20120525

REACTIONS (12)
  - Anxiety [None]
  - Irritability [None]
  - Tachyphrenia [None]
  - Obsessive-compulsive disorder [None]
  - Anxiety [None]
  - Aphagia [None]
  - Insomnia [None]
  - Weight decreased [None]
  - Loss of employment [None]
  - Impaired work ability [None]
  - Drug ineffective [None]
  - Product substitution issue [None]
